FAERS Safety Report 24946262 (Version 1)
Quarter: 2025Q1

REPORT INFORMATION
  Report Type: Spontaneous
  Country: GB (occurrence: GB)
  Receive Date: 20250210
  Receipt Date: 20250210
  Transmission Date: 20250409
  Serious: Yes (Other)
  Sender: ALKEM
  Company Number: None

PATIENT
  Age: 4 Decade
  Sex: Female

DRUGS (20)
  1. LINEZOLID [Suspect]
     Active Substance: LINEZOLID
     Indication: Mycobacterium abscessus infection
     Dosage: 600 MILLIGRAM, QD
     Route: 048
  2. LINEZOLID [Suspect]
     Active Substance: LINEZOLID
     Dosage: 300 MILLIGRAM, QD (RESTARTED) (STOPPED AT AFTER 8 MONTHS)
     Route: 048
  3. LINEZOLID [Suspect]
     Active Substance: LINEZOLID
     Route: 065
  4. CIPROFLOXACIN [Suspect]
     Active Substance: CIPROFLOXACIN
     Indication: Mycobacterium abscessus infection
     Dosage: 500 MILLIGRAM, BID (TWO TIMES PER DAY) (STOPPED AFTER 4 DAYS)
     Route: 048
  5. CLOFAZIMINE [Suspect]
     Active Substance: CLOFAZIMINE
     Indication: Mycobacterium abscessus infection
     Dosage: 200 MILLIGRAM, QD (SWITCHED)
     Route: 048
  6. CLOFAZIMINE [Suspect]
     Active Substance: CLOFAZIMINE
     Dosage: 200 MILLIGRAM, QD (SUSPENDED FOR 2 WEEKS)
     Route: 048
  7. CLOFAZIMINE [Suspect]
     Active Substance: CLOFAZIMINE
     Dosage: 200 MILLIGRAM, QD (STOPPED AFTER 8 MONTHS)
     Route: 048
  8. CLOFAZIMINE [Suspect]
     Active Substance: CLOFAZIMINE
     Dosage: 20 MILLIGRAM, QD (STOPPED AFTER 13 MONTHS)
     Route: 048
  9. AMIKACIN [Concomitant]
     Active Substance: AMIKACIN
     Indication: Mycobacterium abscessus infection
     Dosage: 1.1 GRAM, QD (ONE TIME PER DAY) (DISCHARGED)
     Route: 042
  10. AMIKACIN [Concomitant]
     Active Substance: AMIKACIN
     Dosage: 1.1 GRAM, QD (THREE TIMES PER WEEK)
     Route: 042
  11. AZITHROMYCIN [Concomitant]
     Active Substance: AZITHROMYCIN
     Indication: Mycobacterium abscessus infection
     Dosage: 500 MILLIGRAM, QD (ONE TIME PER DAY)
     Route: 048
  12. CEFOXITIN [Concomitant]
     Active Substance: CEFOXITIN SODIUM
     Indication: Mycobacterium abscessus infection
     Dosage: 2 GRAM, TID (STOPPED AFTER 11 MONTHS)
     Route: 042
  13. CEFOXITIN [Concomitant]
     Active Substance: CEFOXITIN SODIUM
     Dosage: 2 GRAM, TID (STOPPED AFTER 8 MONTHS)
     Route: 042
  14. CEFOXITIN [Concomitant]
     Active Substance: CEFOXITIN SODIUM
     Dosage: 2 GRAM, TID (SWITCHED AFTER 3 WEEKS)
     Route: 042
  15. CEFOXITIN [Concomitant]
     Active Substance: CEFOXITIN SODIUM
     Dosage: 2 GRAM, TID (SUSPENDED FOR 2 WEEKS)
     Route: 042
  16. CEFOXITIN [Concomitant]
     Active Substance: CEFOXITIN SODIUM
     Dosage: 2 GRAM, TID (STOPPED AFTER 4 DAYS)
     Route: 042
  17. CILASTATIN SODIUM\IMIPENEM [Concomitant]
     Active Substance: CILASTATIN SODIUM\IMIPENEM
     Indication: Mycobacterium abscessus infection
     Dosage: 1 GRAM, BID (DISCHARGED)
     Route: 042
  18. COTRIMOXAZOLE [Concomitant]
     Active Substance: SULFAMETHOXAZOLE\TRIMETHOPRIM
     Indication: Mycobacterium abscessus infection
     Route: 065
  19. MEROPENEM [Concomitant]
     Active Substance: MEROPENEM
     Indication: Mycobacterium abscessus infection
     Route: 065
  20. TIGECYCLINE [Concomitant]
     Active Substance: TIGECYCLINE
     Indication: Mycobacterium abscessus infection
     Dosage: 50 MILLIGRAM, BID (STOPPED AFTER 3 WEEKS)
     Route: 042

REACTIONS (3)
  - Neuropathy peripheral [Not Recovered/Not Resolved]
  - Hepatic enzyme abnormal [Recovered/Resolved]
  - Therapy partial responder [Unknown]
